FAERS Safety Report 23833936 (Version 3)
Quarter: 2024Q4

REPORT INFORMATION
  Report Type: Spontaneous
  Country: BR (occurrence: BR)
  Receive Date: 20240509
  Receipt Date: 20241008
  Transmission Date: 20250115
  Serious: Yes (Disabling)
  Sender: CELLTRION
  Company Number: BR-CELLTRION INC.-2023BR005375

PATIENT

DRUGS (11)
  1. INFLIXIMAB [Suspect]
     Active Substance: INFLIXIMAB
     Indication: Crohn^s disease
     Dosage: 4 AMPOULES OF 100 MG (400MG) EVERY 30 DAYS
     Route: 042
     Dates: start: 2022
  2. INFLIXIMAB [Suspect]
     Active Substance: INFLIXIMAB
     Dosage: 4 AMPOULES OF 100 MG(400 MG) EVERY 30 DAYS
     Route: 042
     Dates: start: 20240827
  3. INFLIXIMAB [Suspect]
     Active Substance: INFLIXIMAB
     Dosage: 4 AMPOULES OF 100 MG EACH (400 MG IN TOTAL) EVERY 30 DAYS
     Route: 042
     Dates: start: 20240924
  4. METHOTREXATE [Concomitant]
     Active Substance: METHOTREXATE
     Indication: Crohn^s disease
     Dosage: 1 APPLICATION PER WEEK, 0.6 ML EVERY 7 DAYS
     Route: 058
     Dates: start: 2016
  5. ESCITALOPRAM [Concomitant]
     Active Substance: ESCITALOPRAM OXALATE
     Indication: Anxiety
     Dosage: 1 PILL A DAY
     Route: 048
     Dates: start: 2022
  6. FOLIC ACID [Concomitant]
     Active Substance: FOLIC ACID
     Indication: Crohn^s disease
     Dosage: 1 PILL PER WEEK
     Route: 048
     Dates: start: 2016
  7. CALCIUM\CHOLECALCIFEROL [Concomitant]
     Active Substance: CALCIUM\CHOLECALCIFEROL
     Indication: Pain in extremity
     Dosage: 2 PILLS A DAY
     Route: 048
     Dates: start: 2016
  8. MESALAMINE [Concomitant]
     Active Substance: MESALAMINE
     Indication: Crohn^s disease
     Dosage: 3 PILLS EVERY 12 HOURS
     Route: 048
     Dates: start: 2016
  9. OLANZAPINE [Concomitant]
     Active Substance: OLANZAPINE
     Indication: Cerebrovascular accident
     Dosage: 1 PILL A DAY
     Route: 048
     Dates: start: 2022
  10. DONEPEZIL [Concomitant]
     Active Substance: DONEPEZIL
     Indication: Cerebrovascular accident
     Dosage: 1 PILL A DAY
     Route: 048
     Dates: start: 2022
  11. LAMOTRIGINE [Concomitant]
     Active Substance: LAMOTRIGINE
     Indication: Epilepsy
     Dosage: 1 TABLET A DAY
     Route: 048

REACTIONS (7)
  - Bedridden [Recovered/Resolved]
  - Depression [Recovered/Resolved]
  - Pain [Recovered/Resolved]
  - Pyrexia [Recovered/Resolved]
  - Dengue fever [Unknown]
  - Intentional dose omission [Unknown]
  - Intentional product use issue [Unknown]

NARRATIVE: CASE EVENT DATE: 20230301
